FAERS Safety Report 11372942 (Version 1)
Quarter: 2015Q3

REPORT INFORMATION
  Report Type: Spontaneous
  Country: US (occurrence: US)
  Receive Date: 20150811
  Receipt Date: 20150811
  Transmission Date: 20151125
  Serious: No
  Sender: FDA-Public Use
  Company Number: US-ELI_LILLY_AND_COMPANY-US201202004473

PATIENT
  Age: 68 Year
  Sex: Male
  Weight: 102.4 kg

DRUGS (1)
  1. CIALIS [Suspect]
     Active Substance: TADALAFIL
     Indication: ERECTILE DYSFUNCTION
     Dosage: 2.5 MG, QD
     Dates: start: 20120211

REACTIONS (6)
  - Restlessness [Recovered/Resolved]
  - Anxiety [Recovered/Resolved]
  - Feeling hot [Recovered/Resolved]
  - Back pain [Recovered/Resolved]
  - Drug ineffective [Unknown]
  - Nausea [Recovered/Resolved]

NARRATIVE: CASE EVENT DATE: 20120211
